FAERS Safety Report 6435637-1 (Version None)
Quarter: 2009Q4

REPORT INFORMATION
  Report Type: 
  Country: None (occurrence: None)
  Receive Date: 20091111
  Receipt Date: 20091104
  Transmission Date: 20100525
  Serious: Yes (Other)
  Sender: FDA-Public Use
  Company Number: FR-JNJFOC-20090708397

PATIENT
  Sex: Male
  Weight: 103 kg

DRUGS (6)
  1. RISPERDAL CONSTA [Suspect]
     Route: 030
  2. RISPERDAL CONSTA [Suspect]
     Route: 030
  3. RISPERDAL CONSTA [Suspect]
     Indication: DRUG USE FOR UNKNOWN INDICATION
     Route: 030
  4. DEPAKOTE [Concomitant]
     Route: 065
  5. LOXAPAC [Concomitant]
     Route: 065
  6. TRANXENE [Concomitant]
     Route: 065

REACTIONS (4)
  - INAPPROPRIATE SCHEDULE OF DRUG ADMINISTRATION [None]
  - OFF LABEL USE [None]
  - OVERDOSE [None]
  - SOMNOLENCE [None]
